FAERS Safety Report 6657387-9 (Version None)
Quarter: 2010Q1

REPORT INFORMATION
  Report Type: 
  Country: None (occurrence: None)
  Receive Date: 20100330
  Receipt Date: 20100322
  Transmission Date: 20100710
  Serious: Yes (Other)
  Sender: FDA-Public Use
  Company Number: US-MYLANLABS-2010S1004935

PATIENT
  Age: 15 Year
  Sex: Female

DRUGS (3)
  1. CLARAVIS [Suspect]
     Dates: start: 20100122
  2. AMNESTEEM [Suspect]
     Route: 048
     Dates: end: 20100321
  3. ORAL CONTRACEPTIVE NOS [Concomitant]
     Dates: end: 20100215

REACTIONS (1)
  - DRUG EXPOSURE DURING PREGNANCY [None]
